FAERS Safety Report 19283927 (Version 3)
Quarter: 2021Q2

REPORT INFORMATION
  Report Type: Spontaneous
  Country: DE (occurrence: DE)
  Receive Date: 20210521
  Receipt Date: 20210625
  Transmission Date: 20210717
  Serious: Yes (Other)
  Sender: FDA-Public Use
  Company Number: DE-PFIZER INC-2021533902

PATIENT
  Sex: Male
  Weight: 72 kg

DRUGS (4)
  1. LATANOPROST. [Suspect]
     Active Substance: LATANOPROST
     Indication: CATARACT
  2. LATANOPROST PFIZER [Suspect]
     Active Substance: LATANOPROST
     Indication: CATARACT
  3. LATANOPROST PFIZER [Suspect]
     Active Substance: LATANOPROST
     Indication: GLAUCOMA
     Dosage: 50 MG, 1X/DAY (BOTH EYES)
     Dates: start: 20210401, end: 20210419
  4. LATANOPROST. [Suspect]
     Active Substance: LATANOPROST
     Indication: GLAUCOMA
     Dosage: 50 MG, 1X/DAY (BOTH EYES)

REACTIONS (1)
  - Dry age-related macular degeneration [Unknown]
